FAERS Safety Report 9219799 (Version 3)
Quarter: 2013Q2

REPORT INFORMATION
  Report Type: Report from Study
  Country: CN (occurrence: CN)
  Receive Date: 20130409
  Receipt Date: 20130613
  Transmission Date: 20140414
  Serious: Yes (Death)
  Sender: FDA-Public Use
  Company Number: CN-ROCHE-1208470

PATIENT
  Sex: 0

DRUGS (2)
  1. ALTEPLASE [Suspect]
     Indication: CEREBRAL INFARCTION
     Route: 042
  2. ENOXAPARIN [Suspect]
     Indication: CEREBRAL INFARCTION
     Route: 058

REACTIONS (1)
  - Cerebral infarction [Fatal]
